FAERS Safety Report 21289036 (Version 1)
Quarter: 2022Q3

REPORT INFORMATION
  Report Type: Spontaneous
  Country: US (occurrence: None)
  Receive Date: 20220902
  Receipt Date: 20220902
  Transmission Date: 20221027
  Serious: Yes (Hospitalization)
  Sender: FDA-Public Use
  Company Number: None

PATIENT
  Sex: Female

DRUGS (1)
  1. PROLIA [Suspect]
     Active Substance: DENOSUMAB
     Indication: Osteoporosis
     Dosage: 60 MG/ML SUBCUTANEOUS?INJECT 1 SYRINGE UNDER THE SKIN (SUBCUTANEOUS INJECTION) EVERY 6 MONTHS
     Route: 058
     Dates: start: 20220119

REACTIONS (2)
  - Dermatitis contact [None]
  - Cardiac operation [None]
